FAERS Safety Report 18497495 (Version 1)
Quarter: 2020Q4

REPORT INFORMATION
  Report Type: Spontaneous
  Country: DE (occurrence: DE)
  Receive Date: 20201112
  Receipt Date: 20201112
  Transmission Date: 20210114
  Serious: Yes (Hospitalization)
  Sender: FDA-Public Use
  Company Number: DE-TEVA-2020-DE-1847328

PATIENT
  Age: 21 Year
  Sex: Male
  Weight: 57 kg

DRUGS (5)
  1. FENTANYL. [Suspect]
     Active Substance: FENTANYL
     Dosage: 75 MICROGRAM / H / 3 DAYS, 2-0-0-0
     Route: 062
  2. INSULIN DETEMIR [Concomitant]
     Active Substance: INSULIN DETEMIR
     Dosage: 20 IU (INTERNATIONAL UNIT) DAILY; 0-0-0-1
     Route: 058
  3. INSULIN DETEMIR [Concomitant]
     Active Substance: INSULIN DETEMIR
     Dosage: 14 IU (INTERNATIONAL UNIT) DAILY; 1-0-0-0
     Route: 058
  4. INSULIN ASPART [Concomitant]
     Active Substance: INSULIN ASPART
     Dosage: NK IE, ACCORDING TO THE SCHEME
     Route: 058
  5. FENTANYL. [Suspect]
     Active Substance: FENTANYL
     Dosage: 2 DOSAGE FORMS DAILY; 200 MICROGRAM, 0-0-2-0,
     Route: 065

REACTIONS (4)
  - Hyperhidrosis [Unknown]
  - Tremor [Unknown]
  - Dizziness [Unknown]
  - Restlessness [Unknown]
